FAERS Safety Report 17658147 (Version 1)
Quarter: 2020Q2

REPORT INFORMATION
  Report Type: Spontaneous
  Country: US (occurrence: US)
  Receive Date: 20200411
  Receipt Date: 20200411
  Transmission Date: 20200713
  Serious: No
  Sender: FDA-Public Use
  Company Number: US-TEVA-2020-US-1220420

PATIENT
  Age: 60 Year
  Sex: Female
  Weight: 68.04 kg

DRUGS (4)
  1. PREGABALIN TEVA [Suspect]
     Active Substance: PREGABALIN
     Dosage: 300 MILLIGRAM DAILY; 300MG CAPSULE AT NIGHT
     Route: 048
  2. PREGABALIN TEVA [Suspect]
     Active Substance: PREGABALIN
     Indication: FIBROMYALGIA
     Dosage: 600 MILLIGRAM DAILY;
     Route: 048
     Dates: start: 201908
  3. PREGABALIN TEVA [Suspect]
     Active Substance: PREGABALIN
     Dosage: 200 MILLIGRAM DAILY; 200MG CAPSULE AT NIGHT
     Route: 048
  4. PREGABALIN TEVA [Suspect]
     Active Substance: PREGABALIN
     Dosage: 500 MILLIGRAM DAILY; 300MG CAPSULE IN THE MORNING AND 200MG CAPSULE AT NIGHT
     Route: 048

REACTIONS (5)
  - Headache [Unknown]
  - Anxiety [Unknown]
  - Diarrhoea [Unknown]
  - Abdominal pain upper [Unknown]
  - Vision blurred [Unknown]

NARRATIVE: CASE EVENT DATE: 202003
